FAERS Safety Report 8012269-5 (Version None)
Quarter: 2011Q4

REPORT INFORMATION
  Report Type: 
  Country: None (occurrence: None)
  Receive Date: 20111228
  Receipt Date: 20111220
  Transmission Date: 20120403
  Serious: Yes (Hospitalization, Other)
  Sender: FDA-Public Use
  Company Number: US-ELI_LILLY_AND_COMPANY-US201112006049

PATIENT
  Sex: Male

DRUGS (7)
  1. NIACIN [Concomitant]
     Dosage: 500 MG ONCE DAILY,
  2. METFORMIN HCL [Concomitant]
     Dosage: 500 MG TWICE DAILY
  3. CARVEDILOL [Concomitant]
     Dosage: 6.25 MG ONCE PER DAY
  4. EFFIENT [Suspect]
     Indication: MYOCARDIAL INFARCTION
     Dosage: 10 MG, QD
     Dates: start: 20111001
  5. ASPIRIN [Concomitant]
     Dosage: 81 MG ONCE DAILY
  6. LISINOPRIL [Concomitant]
     Dosage: 10 MG ONCE DAILY
  7. GLIMEPIRIDE [Concomitant]
     Dosage: 4 MG TWICE DAILY,

REACTIONS (4)
  - ABNORMAL BEHAVIOUR [None]
  - DYSPNOEA [None]
  - ARRHYTHMIA [None]
  - SYNCOPE [None]
